FAERS Safety Report 12093581 (Version 1)
Quarter: 2016Q1

REPORT INFORMATION
  Report Type: Report from Study
  Country: CO (occurrence: CO)
  Receive Date: 20160219
  Receipt Date: 20160219
  Transmission Date: 20160526
  Serious: Yes (Death, Other)
  Sender: FDA-Public Use
  Company Number: PHHY2015CO165442

PATIENT
  Age: 31 Year
  Sex: Female
  Weight: 40 kg

DRUGS (2)
  1. VOTRIENT [Suspect]
     Active Substance: PAZOPANIB HYDROCHLORIDE
     Indication: MYXOID LIPOSARCOMA
     Dosage: 400 MG, QD
     Route: 048
     Dates: start: 20151016, end: 20151219
  2. VOTRIENT [Suspect]
     Active Substance: PAZOPANIB HYDROCHLORIDE
     Indication: RENAL CANCER

REACTIONS (3)
  - Death [Fatal]
  - Drug ineffective [Unknown]
  - Malignant neoplasm progression [Unknown]

NARRATIVE: CASE EVENT DATE: 20160215
